FAERS Safety Report 5298042-X (Version None)
Quarter: 2007Q2

REPORT INFORMATION
  Report Type: 
  Country: None (occurrence: None)
  Receive Date: 20070416
  Receipt Date: 20070404
  Transmission Date: 20071010
  Serious: Yes (Hospitalization, Disabling)
  Sender: FDA-Public Use
  Company Number: US-JNJFOC-20070402649

PATIENT
  Age: 50 Year
  Sex: Male

DRUGS (3)
  1. DARUNAVIR [Suspect]
     Indication: HIV INFECTION
     Route: 065
  2. RITONAVIR [Concomitant]
     Route: 065
  3. TRUVADA [Concomitant]
     Route: 065

REACTIONS (2)
  - CEREBRAL INFARCTION [None]
  - HAEMORRHAGE INTRACRANIAL [None]
